FAERS Safety Report 5331849-9 (Version None)
Quarter: 2007Q2

REPORT INFORMATION
  Report Type: 
  Country: None (occurrence: None)
  Receive Date: 20070306
  Receipt Date: 20051129
  Transmission Date: 20071010
  Serious: Yes (Hospitalization)
  Sender: FDA-Public Use
  Company Number: A03200503937

PATIENT
  Age: 89 Year
  Sex: Male

DRUGS (11)
  1. PLAVIX [Suspect]
     Dosage: 75 MG QD ORAL
     Route: 048
     Dates: start: 20050930
  2. PRAVACHOL [Suspect]
     Dosage: 40 MG QD ORAL
     Route: 048
     Dates: start: 19820701
  3. ASA - ACETYLSALICYLIC ACID - TABLET - 81 MG [Suspect]
     Dosage: 81 MG QD ORAL
     Route: 048
     Dates: start: 19980101
  4. CARVEDILOL [Concomitant]
  5. FISH OIL, HYDROGENATED [Concomitant]
  6. ATORVASTATIN [Concomitant]
  7. LISINOPRIL [Concomitant]
  8. GLYCERYL TRINITRATE [Concomitant]
  9. DORZOLAMIDE HYDROCHLORIDE [Concomitant]
  10. LATANOPROST [Concomitant]
  11. RANITIDINE HYDROCHLORIDE [Concomitant]

REACTIONS (1)
  - MYOCARDIAL INFARCTION [None]
